FAERS Safety Report 21141336 (Version 2)
Quarter: 2022Q3

REPORT INFORMATION
  Report Type: Report from Study
  Country: US (occurrence: US)
  Receive Date: 20220728
  Receipt Date: 20220905
  Transmission Date: 20221026
  Serious: Yes (Other)
  Sender: FDA-Public Use
  Company Number: US-TAKEDA-2022TUS038015

PATIENT
  Sex: Female
  Weight: 65.887 kg

DRUGS (3)
  1. MOBOCERTINIB [Suspect]
     Active Substance: MOBOCERTINIB
     Indication: Lung neoplasm malignant
     Dosage: 160 MILLIGRAM, QD
     Route: 048
     Dates: start: 20220526
  2. MOBOCERTINIB [Suspect]
     Active Substance: MOBOCERTINIB
     Dosage: 120 MILLIGRAM, QD
     Route: 048
  3. LOSARTAN [Concomitant]
     Active Substance: LOSARTAN
     Dosage: UNK

REACTIONS (15)
  - Brain oedema [Unknown]
  - Gamma radiation therapy [Unknown]
  - Coating in mouth [Recovered/Resolved]
  - Peripheral swelling [Unknown]
  - Oedema peripheral [Unknown]
  - Headache [Unknown]
  - Platelet count decreased [Not Recovered/Not Resolved]
  - Blood potassium decreased [Unknown]
  - Nail disorder [Unknown]
  - Stomatitis [Unknown]
  - Rash [Unknown]
  - Dry skin [Unknown]
  - Vomiting [Unknown]
  - Decreased appetite [Unknown]
  - Diarrhoea [Not Recovered/Not Resolved]
